FAERS Safety Report 8082108-5 (Version None)
Quarter: 2012Q1

REPORT INFORMATION
  Report Type: 
  Country: None (occurrence: None)
  Receive Date: 20120127
  Receipt Date: 20110204
  Transmission Date: 20120608
  Serious: No
  Sender: FDA-Public Use
  Company Number: US-ABBOTT-11P-163-0704157-00

PATIENT
  Sex: Male
  Weight: 111.23 kg

DRUGS (3)
  1. PAXIL [Concomitant]
     Indication: DEPRESSION
     Route: 048
  2. TRICOR [Suspect]
     Indication: BLOOD CHOLESTEROL INCREASED
     Route: 048
     Dates: start: 20101101
  3. HUMIRA [Suspect]
     Indication: PSORIASIS
     Route: 058
     Dates: start: 20100429, end: 20110101

REACTIONS (3)
  - PRURITUS [None]
  - URTICARIA [None]
  - BLOOD CHOLESTEROL INCREASED [None]
